FAERS Safety Report 10012435 (Version 1)
Quarter: 2014Q1

REPORT INFORMATION
  Report Type: Spontaneous
  Country: US (occurrence: US)
  Receive Date: 20140312
  Receipt Date: 20140312
  Transmission Date: 20141002
  Serious: Yes (Other)
  Sender: FDA-Public Use
  Company Number: US-PFIZER INC-2014069209

PATIENT
  Age: 32 Year
  Sex: Female

DRUGS (2)
  1. LYRICA [Suspect]
     Dosage: UNK
  2. PRIALT [Interacting]
     Dosage: UNK

REACTIONS (11)
  - Loss of consciousness [Unknown]
  - Back pain [Unknown]
  - Hyperhidrosis [Unknown]
  - Nasopharyngitis [Unknown]
  - Insomnia [Unknown]
  - Dizziness [Unknown]
  - Feeling abnormal [Unknown]
  - Local swelling [Recovered/Resolved]
  - Neuropathy peripheral [Unknown]
  - Swelling face [Recovered/Resolved]
  - Drug interaction [Unknown]
